FAERS Safety Report 17136922 (Version 3)
Quarter: 2020Q2

REPORT INFORMATION
  Report Type: Spontaneous
  Country: US (occurrence: US)
  Receive Date: 20191210
  Receipt Date: 20200504
  Transmission Date: 20200713
  Serious: No
  Sender: FDA-Public Use
  Company Number: US-LEXICON PHARMACEUTICALS, INC-19-1606-01084

PATIENT
  Age: 60 Year
  Sex: Female

DRUGS (4)
  1. XERMELO [Suspect]
     Active Substance: TELOTRISTAT ETHYL
     Indication: CARCINOID SYNDROME
     Dates: start: 20191119
  2. SOMATULINE [Concomitant]
     Active Substance: LANREOTIDE ACETATE
  3. AFINITOR [Concomitant]
     Active Substance: EVEROLIMUS
     Indication: CARCINOID SYNDROME
     Route: 048
  4. ANTIBIOTICS [Suspect]
     Active Substance: UNSPECIFIED INGREDIENT

REACTIONS (5)
  - Upper respiratory tract infection [Unknown]
  - Constipation [Recovered/Resolved]
  - Flatulence [Unknown]
  - Frequent bowel movements [Unknown]
  - Nausea [Recovering/Resolving]

NARRATIVE: CASE EVENT DATE: 2019
